FAERS Safety Report 6243713-1 (Version None)
Quarter: 2009Q2

REPORT INFORMATION
  Report Type: 
  Country: None (occurrence: None)
  Receive Date: 20090624
  Receipt Date: 20090529
  Transmission Date: 20091009
  Serious: Yes (Hospitalization, Other)
  Sender: FDA-Public Use
  Company Number: JP-PFIZER INC-2009199754

PATIENT
  Age: 67 Year

DRUGS (10)
  1. AZITHROMYCIN [Suspect]
     Indication: PNEUMONIA
     Dosage: 500 MG, 1X/DAY
     Route: 042
     Dates: start: 20090327, end: 20090330
  2. ATORVASTATIN CALCIUM [Concomitant]
     Indication: DYSLIPIDAEMIA
     Route: 048
     Dates: start: 20080301
  3. WARFARIN POTASSIUM [Concomitant]
     Indication: ATRIAL FIBRILLATION
     Route: 048
  4. CARVEDILOL [Concomitant]
     Indication: ATRIAL FIBRILLATION
     Route: 048
  5. BEPRIDIL HYDROCHLORIDE MONOHYDRATE [Concomitant]
     Indication: ATRIAL FIBRILLATION
     Route: 048
  6. LOXOPROFEN SODIUM [Concomitant]
     Route: 048
     Dates: start: 20090327, end: 20090327
  7. SALBUTAMOL SULFATE [Concomitant]
     Dates: start: 20090327, end: 20090327
  8. BROMHEXINE [Concomitant]
     Dates: start: 20090327, end: 20090327
  9. BROCIN-CODEINE [Concomitant]
     Indication: PNEUMONIA
     Dosage: UNK
     Route: 048
     Dates: start: 20090330, end: 20090331
  10. DEXTROMETHORPHAN HYDROBROMIDE [Concomitant]
     Indication: PNEUMONIA
     Route: 048
     Dates: start: 20090327

REACTIONS (1)
  - PNEUMONIA [None]
